FAERS Safety Report 9799318 (Version 1)
Quarter: 2014Q1

REPORT INFORMATION
  Report Type: Spontaneous
  Country: DK (occurrence: RS)
  Receive Date: 20140106
  Receipt Date: 20140106
  Transmission Date: 20141002
  Serious: Yes (Other)
  Sender: FDA-Public Use
  Company Number: RS-FRI-1000052635

PATIENT
  Sex: Female

DRUGS (3)
  1. ESCITALOPRAM [Suspect]
     Indication: PANIC DISORDER
     Dosage: 10 MG
     Route: 048
     Dates: start: 201309
  2. ESCITALOPRAM [Suspect]
     Dosage: 5 MG
     Route: 048
  3. RIVOTRIL [Concomitant]
     Indication: PRODUCT USED FOR UNKNOWN INDICATION

REACTIONS (1)
  - Night sweats [Unknown]
